FAERS Safety Report 13612383 (Version 1)
Quarter: 2017Q2

REPORT INFORMATION
  Report Type: Spontaneous
  Country: FR (occurrence: FR)
  Receive Date: 20170605
  Receipt Date: 20170605
  Transmission Date: 20170830
  Serious: Yes (Other)
  Sender: FDA-Public Use
  Company Number: FR-BAYER-2017-100661

PATIENT
  Age: 35 Year
  Sex: Female

DRUGS (1)
  1. MIRENA [Suspect]
     Active Substance: LEVONORGESTREL
     Dosage: 20 MCG/24HR, CONT
     Route: 015

REACTIONS (9)
  - Abdominal pain [Unknown]
  - Weight increased [Unknown]
  - Adnexa uteri pain [Unknown]
  - Mood swings [Recovering/Resolving]
  - Amenorrhoea [Unknown]
  - Tinnitus [Unknown]
  - Migraine [Recovering/Resolving]
  - Vertigo [Unknown]
  - Diffuse alopecia [Unknown]

NARRATIVE: CASE EVENT DATE: 20150601
